FAERS Safety Report 5387345-6 (Version None)
Quarter: 2007Q3

REPORT INFORMATION
  Report Type: 
  Country: None (occurrence: None)
  Receive Date: 20070711
  Receipt Date: 20070627
  Transmission Date: 20080115
  Serious: Yes (Hospitalization)
  Sender: FDA-Public Use
  Company Number: 02100-EUR-07-0064

PATIENT
  Age: 66 Year
  Sex: Male

DRUGS (4)
  1. CILOSTAZOL [Suspect]
     Indication: INTERMITTENT CLAUDICATION
     Dosage: 200 MG, ORAL
     Route: 048
     Dates: start: 20070315, end: 20070326
  2. THEOPHYLLINE [Concomitant]
  3. NEBIVOLOL HYDROCHLORIDE [Concomitant]
  4. DIGITOXIN TAB [Concomitant]

REACTIONS (8)
  - BRONCHITIS [None]
  - CHRONIC OBSTRUCTIVE PULMONARY DISEASE [None]
  - CONDITION AGGRAVATED [None]
  - GENERAL PHYSICAL HEALTH DETERIORATION [None]
  - HEADACHE [None]
  - INFLAMMATION [None]
  - LEUKOCYTOSIS [None]
  - SINUS TACHYCARDIA [None]
